FAERS Safety Report 22093138 (Version 3)
Quarter: 2023Q2

REPORT INFORMATION
  Report Type: Spontaneous
  Country: JP (occurrence: None)
  Receive Date: 20230314
  Receipt Date: 20230405
  Transmission Date: 20230722
  Serious: Yes (Other)
  Sender: FDA-Public Use
  Company Number: 2023A058261

PATIENT
  Age: 72 Year
  Sex: Male

DRUGS (7)
  1. FASENRA [Suspect]
     Active Substance: BENRALIZUMAB
     Indication: Asthma
     Route: 058
  2. FLUTICASONE FUROATE\VILANTEROL TRIFENATATE [Concomitant]
     Active Substance: FLUTICASONE FUROATE\VILANTEROL TRIFENATATE
  3. NIFEDIPINE [Concomitant]
     Active Substance: NIFEDIPINE
  4. TOPIROXOSTAT [Concomitant]
     Active Substance: TOPIROXOSTAT
  5. AMLODIPINE BESILATE/EZETIMIBE/LOSARTAN POTASSIUM/ROSUVASTATIN CALCIUM [Concomitant]
  6. MONTELUKAST [Concomitant]
     Active Substance: MONTELUKAST SODIUM
  7. ALLOPURINOL [Concomitant]
     Active Substance: ALLOPURINOL

REACTIONS (2)
  - Pneumonitis [Unknown]
  - Off label use [Unknown]

NARRATIVE: CASE EVENT DATE: 20230306
